FAERS Safety Report 9068581 (Version 1)
Quarter: 2013Q1

REPORT INFORMATION
  Report Type: Spontaneous
  Country: US (occurrence: None)
  Receive Date: 20130212
  Receipt Date: 20130212
  Transmission Date: 20140127
  Serious: Yes (Other)
  Sender: FDA-Public Use
  Company Number: None

PATIENT
  Age: 17 Year
  Sex: Female
  Weight: 58.97 kg

DRUGS (1)
  1. QUASENSE, WATSON PHARMACEUTICALS [Suspect]
     Indication: DYSMENORRHOEA
     Route: 048
     Dates: start: 20121001, end: 20130109

REACTIONS (3)
  - Angioedema [None]
  - Product substitution issue [None]
  - Product quality issue [None]
